FAERS Safety Report 10583646 (Version 3)
Quarter: 2015Q1

REPORT INFORMATION
  Report Type: Spontaneous
  Country: GB (occurrence: GB)
  Receive Date: 20141114
  Receipt Date: 20150212
  Transmission Date: 20150720
  Serious: Yes (Death, Other)
  Sender: FDA-Public Use
  Company Number: PHFR2014GB007886

PATIENT
  Age: 43 Year
  Sex: Male

DRUGS (13)
  1. QUETIAPINE [Concomitant]
     Active Substance: QUETIAPINE
     Indication: PRODUCT USED FOR UNKNOWN INDICATION
     Dosage: 50 MG, BID
     Route: 065
  2. MADOPAR 62.5 [Concomitant]
     Active Substance: BENSERAZIDE HYDROCHLORIDE\LEVODOPA
     Indication: PRODUCT USED FOR UNKNOWN INDICATION
     Dosage: 62.5 MG, IN MORNING
     Route: 065
  3. EPILIM [Concomitant]
     Active Substance: VALPROATE SODIUM
     Indication: PRODUCT USED FOR UNKNOWN INDICATION
     Dosage: 200 MG, TID
     Route: 065
  4. QUETIAPINE [Concomitant]
     Active Substance: QUETIAPINE
     Dosage: 100 MG, TID
     Route: 065
  5. SENNA [Concomitant]
     Active Substance: SENNA LEAF\SENNOSIDES\SENNOSIDES A AND B
     Indication: PRODUCT USED FOR UNKNOWN INDICATION
     Dosage: 1 OT, BID
     Route: 065
  6. CLOZARIL [Suspect]
     Active Substance: CLOZAPINE
     Indication: SCHIZOPHRENIA
     Dosage: UNK
     Route: 048
     Dates: start: 20010701
  7. CLOZARIL [Suspect]
     Active Substance: CLOZAPINE
     Dosage: 350 MG, BID
     Route: 048
  8. DOMPERIDONE [Concomitant]
     Active Substance: DOMPERIDONE
     Indication: PRODUCT USED FOR UNKNOWN INDICATION
     Dosage: 10 MG, TID
     Route: 065
  9. ROPINIROLE. [Concomitant]
     Active Substance: ROPINIROLE
     Indication: PRODUCT USED FOR UNKNOWN INDICATION
     Dosage: 500 UG, TID
     Route: 065
  10. ESOMEPRAZOLE [Concomitant]
     Active Substance: ESOMEPRAZOLE
     Indication: PRODUCT USED FOR UNKNOWN INDICATION
     Dosage: 40 MG, AT NIGHT
     Route: 065
  11. CITALOPRAM [Concomitant]
     Active Substance: CITALOPRAM HYDROBROMIDE
     Indication: GENERAL PHYSICAL HEALTH DETERIORATION
     Dosage: 20 MG, QD
     Route: 065
  12. HYOSCINE [Concomitant]
     Active Substance: SCOPOLAMINE
     Indication: PRODUCT USED FOR UNKNOWN INDICATION
     Dosage: 10 MG, QD
     Route: 065
  13. PROCYCLIDINE [Concomitant]
     Active Substance: PROCYCLIDINE
     Indication: PRODUCT USED FOR UNKNOWN INDICATION
     Dosage: 5 MG, BID
     Route: 065

REACTIONS (20)
  - Gastrointestinal motility disorder [Fatal]
  - Pneumonia aspiration [Fatal]
  - Nervous system disorder [Fatal]
  - General physical health deterioration [Fatal]
  - Constipation [Fatal]
  - Condition aggravated [Fatal]
  - Faecaloma [Unknown]
  - White blood cell count increased [Unknown]
  - Hypokinesia [Fatal]
  - Body mass index decreased [Fatal]
  - Vomiting [Fatal]
  - Neutrophil count increased [Unknown]
  - Agitation [Unknown]
  - Huntington^s disease [Fatal]
  - Bradykinesia [Fatal]
  - Dysphagia [Fatal]
  - Muscle rigidity [Fatal]
  - Mental disorder [Fatal]
  - Schizophrenia [Fatal]
  - Salivary hypersecretion [Unknown]

NARRATIVE: CASE EVENT DATE: 201204
